FAERS Safety Report 7624157-4 (Version None)
Quarter: 2011Q3

REPORT INFORMATION
  Report Type: 
  Country: None (occurrence: None)
  Receive Date: 20110720
  Receipt Date: 20110713
  Transmission Date: 20111222
  Serious: Yes (Hospitalization)
  Sender: FDA-Public Use
  Company Number: DE-ABBOTT-11P-062-0838428-00

PATIENT
  Age: 59 Year
  Sex: Female

DRUGS (13)
  1. METHYLPREDNISOLONE ACETATE [Concomitant]
     Route: 042
  2. METHYLPREDNISOLONE ACETATE [Concomitant]
     Indication: PRODUCT USED FOR UNKNOWN INDICATION
     Route: 042
  3. PREDNISOLON 5 [Concomitant]
     Indication: PRODUCT USED FOR UNKNOWN INDICATION
  4. METHYLPREDNISOLONE ACETATE [Concomitant]
     Route: 042
  5. PANTOPRAZOLE [Concomitant]
     Indication: PRODUCT USED FOR UNKNOWN INDICATION
  6. HUMIRA [Suspect]
     Indication: RHEUMATOID ARTHRITIS
     Dates: start: 20090601, end: 20100907
  7. METHYLPREDNISOLONE ACETATE [Concomitant]
     Route: 042
  8. METHYLPREDNISOLONE ACETATE [Concomitant]
     Route: 042
  9. ARCOXIA 90 [Concomitant]
     Indication: PRODUCT USED FOR UNKNOWN INDICATION
  10. NOVALGIN [Concomitant]
     Indication: PRODUCT USED FOR UNKNOWN INDICATION
  11. RTX [Concomitant]
     Indication: PRODUCT USED FOR UNKNOWN INDICATION
     Dates: start: 20101001
  12. METHYLPREDNISOLONE ACETATE [Concomitant]
     Route: 042
  13. TILIDIN [Concomitant]
     Indication: PRODUCT USED FOR UNKNOWN INDICATION

REACTIONS (5)
  - THROMBOSIS [None]
  - THYROID NEOPLASM [None]
  - PLEURAL EFFUSION [None]
  - DYSPNOEA EXERTIONAL [None]
  - MITRAL VALVE INCOMPETENCE [None]
